FAERS Safety Report 18526596 (Version 4)
Quarter: 2021Q2

REPORT INFORMATION
  Report Type: Spontaneous
  Country: US (occurrence: US)
  Receive Date: 20201120
  Receipt Date: 20210402
  Transmission Date: 20210717
  Serious: Yes (Hospitalization)
  Sender: FDA-Public Use
  Company Number: US-GLAXOSMITHKLINE-US2020AMR228478

PATIENT
  Sex: Female

DRUGS (6)
  1. ZEJULA [Suspect]
     Active Substance: NIRAPARIB
     Dosage: 100 MG, QD
  2. ZEJULA [Suspect]
     Active Substance: NIRAPARIB
     Dosage: 100 MG, QD
  3. ZEJULA [Suspect]
     Active Substance: NIRAPARIB
     Indication: BREAST CANCER
     Dosage: 200 MG
  4. ZEJULA [Suspect]
     Active Substance: NIRAPARIB
     Dosage: 1 DF, QD
  5. ZEJULA [Suspect]
     Active Substance: NIRAPARIB
     Indication: OVARIAN CANCER
     Dosage: 100 MG
     Dates: start: 20201013
  6. ZEJULA [Suspect]
     Active Substance: NIRAPARIB
     Dosage: 2 DF, QD

REACTIONS (9)
  - Stomatitis [Unknown]
  - Product dose omission issue [Unknown]
  - Hospitalisation [Unknown]
  - Gingival pain [Unknown]
  - Adverse drug reaction [Unknown]
  - Gingival bleeding [Unknown]
  - Epistaxis [Not Recovered/Not Resolved]
  - Product dose omission in error [Unknown]
  - Platelet count decreased [Unknown]
